FAERS Safety Report 11164489 (Version 2)
Quarter: 2015Q2

REPORT INFORMATION
  Report Type: Spontaneous
  Country: FR (occurrence: FR)
  Receive Date: 20150604
  Receipt Date: 20150617
  Transmission Date: 20150821
  Serious: Yes (Other)
  Sender: FDA-Public Use
  Company Number: FR-PERRIGO-15FR005379

PATIENT
  Age: 34 Month
  Sex: Female

DRUGS (1)
  1. MINOXIDIL 2% MEN 420 [Suspect]
     Active Substance: MINOXIDIL
     Indication: ACCIDENTAL EXPOSURE TO PRODUCT
     Dosage: 100 MG, SINGLE
     Route: 048

REACTIONS (5)
  - Vomiting [Recovered/Resolved]
  - Hypotension [Recovered/Resolved]
  - Accidental exposure to product [Recovered/Resolved]
  - Poisoning [Recovered/Resolved]
  - Tachycardia [Recovered/Resolved]
